FAERS Safety Report 8479987 (Version 4)
Quarter: 2013Q2

REPORT INFORMATION
  Report Type: Spontaneous
  Country: US (occurrence: US)
  Receive Date: 20120328
  Receipt Date: 20130522
  Transmission Date: 20140414
  Serious: Yes (Death, Hospitalization)
  Sender: FDA-Public Use
  Company Number: US-ELI_LILLY_AND_COMPANY-US201203005984

PATIENT
  Age: 87 Year
  Sex: Female
  Weight: 47.17 kg

DRUGS (15)
  1. FORTEO [Suspect]
     Indication: OSTEOPOROSIS
     Dosage: 20 UG, QD
     Route: 058
     Dates: start: 201111
  2. FORTEO [Suspect]
     Dosage: 20 UG, QD
     Route: 058
  3. FORTEO [Suspect]
     Dosage: 20 UG, QD
     Route: 058
     Dates: start: 201108
  4. CARDIZEM                           /00489701/ [Concomitant]
     Dosage: 180 MG, UNKNOWN
  5. FLECAINIDE [Concomitant]
     Dosage: 0.5 DF, BID
  6. WARFARIN [Concomitant]
     Dosage: UNK, QD
  7. LOVASTATIN [Concomitant]
     Dosage: 10 MG, QD
  8. SPIRONOLACTONE [Concomitant]
     Dosage: 25 MG, UNK
  9. DEXLANSOPRAZOLE [Concomitant]
     Dosage: 50 MG, UNK
  10. COMBIVENT [Concomitant]
  11. CALCIUM [Concomitant]
     Dosage: 1200 MG, QD
  12. VITAMIN D NOS [Concomitant]
     Dosage: 1200 IU, QD
  13. OSTEO BI-FLEX [Concomitant]
  14. VITAMIN C [Concomitant]
     Dosage: 500 MG, QD
  15. CENTRUM SILVER [Concomitant]
     Dosage: UNK, QD

REACTIONS (5)
  - Chronic obstructive pulmonary disease [Fatal]
  - Chronic obstructive pulmonary disease [Recovering/Resolving]
  - Bronchitis [Recovering/Resolving]
  - Weight decreased [Unknown]
  - Hypophagia [Unknown]
